FAERS Safety Report 6692096-1 (Version None)
Quarter: 2010Q2

REPORT INFORMATION
  Report Type: 
  Country: None (occurrence: None)
  Receive Date: 20100422
  Receipt Date: 20090805
  Transmission Date: 20101027
  Serious: No
  Sender: FDA-Public Use
  Company Number: US-ASTRAZENECA-2009SE06878

PATIENT
  Sex: Female

DRUGS (5)
  1. TOPROL-XL [Suspect]
     Route: 048
     Dates: start: 20060707, end: 20090301
  2. SYNTHROID [Concomitant]
  3. PROTONIX [Concomitant]
  4. VYTORIN [Concomitant]
  5. FOSAMAX [Concomitant]

REACTIONS (3)
  - BLOOD PRESSURE FLUCTUATION [None]
  - DRUG DOSE OMISSION [None]
  - HEART RATE IRREGULAR [None]
